FAERS Safety Report 13487992 (Version 1)
Quarter: 2017Q2

REPORT INFORMATION
  Report Type: Report from Study
  Country: US (occurrence: US)
  Receive Date: 20170426
  Receipt Date: 20170426
  Transmission Date: 20170830
  Serious: Yes (Other)
  Sender: FDA-Public Use
  Company Number: US-TEVA-762085USA

PATIENT
  Age: 15 Year
  Sex: Male

DRUGS (1)
  1. COPAXONE [Suspect]
     Active Substance: GLATIRAMER ACETATE
     Indication: MULTIPLE SCLEROSIS
     Route: 058
     Dates: start: 20160930

REACTIONS (11)
  - Tremor [Unknown]
  - Rash [Unknown]
  - Dyspnoea [Unknown]
  - Drug administered to patient of inappropriate age [Unknown]
  - Dizziness [Unknown]
  - Lip swelling [Unknown]
  - Chills [Unknown]
  - Nausea [Unknown]
  - Erythema [Unknown]
  - Urticaria [Unknown]
  - Skin discolouration [Unknown]

NARRATIVE: CASE EVENT DATE: 20170417
